FAERS Safety Report 9376175 (Version 1)
Quarter: 2013Q2

REPORT INFORMATION
  Report Type: Spontaneous
  Country: US (occurrence: None)
  Receive Date: 20130628
  Receipt Date: 20130628
  Transmission Date: 20140414
  Serious: No
  Sender: FDA-Public Use
  Company Number: None

PATIENT
  Age: 78 None
  Sex: Female
  Weight: 53.52 kg

DRUGS (1)
  1. SULFA METHOXAZOLE TMP [Suspect]
     Indication: INFECTION
     Dates: start: 20130411, end: 20130421

REACTIONS (1)
  - Dyspnoea [None]
